FAERS Safety Report 12876278 (Version 2)
Quarter: 2017Q1

REPORT INFORMATION
  Report Type: Spontaneous
  Country: US (occurrence: US)
  Receive Date: 20161024
  Receipt Date: 20170116
  Transmission Date: 20170428
  Serious: No
  Sender: FDA-Public Use
  Company Number: US-JNJFOC-20161004142

PATIENT
  Sex: Male
  Weight: 115.67 kg

DRUGS (3)
  1. CONCERTA [Suspect]
     Active Substance: METHYLPHENIDATE HYDROCHLORIDE
     Indication: ATTENTION DEFICIT/HYPERACTIVITY DISORDER
     Route: 048
     Dates: start: 20161005
  2. CONCERTA [Suspect]
     Active Substance: METHYLPHENIDATE HYDROCHLORIDE
     Indication: ATTENTION DEFICIT/HYPERACTIVITY DISORDER
     Route: 048
     Dates: start: 20160901, end: 20161001
  3. CONCERTA [Suspect]
     Active Substance: METHYLPHENIDATE HYDROCHLORIDE
     Indication: ATTENTION DEFICIT/HYPERACTIVITY DISORDER
     Route: 048
     Dates: start: 20160801, end: 20160831

REACTIONS (4)
  - Drug ineffective [Unknown]
  - Dizziness [Recovered/Resolved]
  - Bronchitis [Not Recovered/Not Resolved]
  - Headache [Recovered/Resolved]

NARRATIVE: CASE EVENT DATE: 2016
